FAERS Safety Report 7016841-0 (Version None)
Quarter: 2010Q3

REPORT INFORMATION
  Report Type: 
  Country: None (occurrence: None)
  Receive Date: 20100927
  Receipt Date: 20100917
  Transmission Date: 20110219
  Serious: Yes (Hospitalization)
  Sender: FDA-Public Use
  Company Number: JP-GENENTECH-306834

PATIENT
  Age: 49 Year
  Sex: Male

DRUGS (7)
  1. GRTPA [Suspect]
     Indication: EMBOLIC STROKE
     Dosage: 30 MG, UNK
     Route: 042
     Dates: start: 20100412, end: 20100412
  2. RADICUT [Suspect]
     Indication: EMBOLIC STROKE
     Dosage: 60 MG, UNK
     Route: 041
     Dates: start: 20100412, end: 20100412
  3. ASPIRIN [Concomitant]
     Indication: PRODUCT USED FOR UNKNOWN INDICATION
     Dosage: UNK
     Route: 048
     Dates: start: 20100412
  4. D-MANNITOL [Concomitant]
     Indication: PRODUCT USED FOR UNKNOWN INDICATION
     Dosage: UNK
     Route: 041
     Dates: start: 20100413, end: 20100413
  5. GLYCEOL [Concomitant]
     Indication: PRODUCT USED FOR UNKNOWN INDICATION
     Dosage: UNK
     Route: 041
     Dates: start: 20100414, end: 20100425
  6. VASODILATOR NOS [Concomitant]
     Indication: PRODUCT USED FOR UNKNOWN INDICATION
  7. HEPARIN [Concomitant]
     Indication: PRODUCT USED FOR UNKNOWN INDICATION
     Dosage: UNK
     Route: 042
     Dates: start: 20100412, end: 20100412

REACTIONS (2)
  - HAEMORRHAGIC CEREBRAL INFARCTION [None]
  - HYDROCEPHALUS [None]
